FAERS Safety Report 5136853-1 (Version None)
Quarter: 2006Q4

REPORT INFORMATION
  Report Type: 
  Country: None (occurrence: None)
  Receive Date: 20061023
  Receipt Date: 20061009
  Transmission Date: 20070319
  Serious: Yes (Other)
  Sender: FDA-Public Use
  Company Number: 2005047340

PATIENT
  Age: 53 Year
  Sex: Male
  Weight: 100 kg

DRUGS (11)
  1. LYRICA [Suspect]
     Indication: EPILEPSY
     Dosage: 150 MG (75 MG, 2 1N 1 D), ORAL
     Route: 048
     Dates: start: 20040930, end: 20050316
  2. CITALOPRAM HYDROBROMIDE [Suspect]
     Indication: ILL-DEFINED DISORDER
     Dosage: (1 IN 1 D), ORAL
     Route: 048
     Dates: end: 20051101
  3. BLOPRESS (CANDESARTAN CILEXETIL) [Concomitant]
  4. CATAPRESAN (CLONDINE) [Concomitant]
  5. BELOC ZAK (METOPROLOL SUCCINATE) [Concomitant]
  6. ALL OTHER THERAPEUTIC PRODUCTS ALL (ALL OTHER THERAPEUTIC PRODUCTS) [Concomitant]
  7. TOPAMAX [Concomitant]
  8. NEURONTIN [Concomitant]
  9. NEXIUM [Concomitant]
  10. BACLOFEN [Concomitant]
  11. CHLORHEXAMED (CHLORHEXIDINE GLUCONATE) [Concomitant]

REACTIONS (14)
  - CANDIDIASIS [None]
  - DYSPHAGIA [None]
  - ENAMEL ANOMALY [None]
  - HYPERAESTHESIA [None]
  - LACTOBACILLUS INFECTION [None]
  - ORAL CANDIDIASIS [None]
  - PERIODONTITIS [None]
  - SKIN FISSURES [None]
  - STREPTOCOCCAL INFECTION [None]
  - TOOTH DECALCIFICATION [None]
  - TOOTH DISCOLOURATION [None]
  - TOOTH DISORDER [None]
  - TOOTH EROSION [None]
  - WRONG TECHNIQUE IN DRUG USAGE PROCESS [None]
